FAERS Safety Report 20517446 (Version 1)
Quarter: 2022Q1

REPORT INFORMATION
  Report Type: Report from Study
  Country: US (occurrence: None)
  Receive Date: 20220225
  Receipt Date: 20220225
  Transmission Date: 20220423
  Serious: Yes (Hospitalization)
  Sender: FDA-Public Use
  Company Number: US-ROCHE-3032835

PATIENT
  Age: 75 Year
  Sex: Male

DRUGS (3)
  1. IBRUTINIB [Suspect]
     Active Substance: IBRUTINIB
     Indication: Chronic lymphocytic leukaemia
     Dosage: THE MOST RECENT DOSE PRIOR TO AE WAS GIVEN ON 20/NOV/2021
     Route: 048
     Dates: start: 20211111, end: 20211120
  2. OBINUTUZUMAB [Suspect]
     Active Substance: OBINUTUZUMAB
     Indication: Chronic lymphocytic leukaemia
     Dosage: ON C1D1, 900MGIVONC1D2,1000MGIVONC1D8 + C1D15. THE MOST RECENT DOSE PRIOR TO AE WAS GIVEN ON 18/NOV/
     Route: 042
     Dates: start: 20211111
  3. VENETOCLAX [Suspect]
     Active Substance: VENETOCLAX
     Indication: Chronic lymphocytic leukaemia
     Dosage: C2-6D1,DAYS1-7CYCLE3 50MGPOQDDAYS 8-14,CYCLE3,100MGPOQDDAYS15- 21,CYCLE3,200MGPOQD DAYS 22- 28,CYCLE
     Route: 048

REACTIONS (1)
  - Atrial fibrillation [Unknown]

NARRATIVE: CASE EVENT DATE: 20211120
